FAERS Safety Report 15659488 (Version 6)
Quarter: 2022Q2

REPORT INFORMATION
  Report Type: Other
  Country: US (occurrence: None)
  Receive Date: 20181127
  Receipt Date: 20220623
  Transmission Date: 20220720
  Serious: Yes (Life-Threatening, Hospitalization, Other)
  Sender: FDA-Public Use
  Company Number: US-ROCHE-2217957

PATIENT
  Age: 61 Year
  Sex: Female
  Weight: 68.100 kg

DRUGS (19)
  1. OCREVUS [Suspect]
     Active Substance: OCRELIZUMAB
     Indication: Relapsing-remitting multiple sclerosis
     Dosage: DATE OF TREATMENT:  21/APR/2018, 05/MAY/2018, 17/NOV/2018, 18/MAY/2019, 18/APR/2022
     Route: 042
     Dates: start: 20180421
  2. OCREVUS [Suspect]
     Active Substance: OCRELIZUMAB
     Indication: Secondary progressive multiple sclerosis
     Route: 041
     Dates: start: 201812
  3. PREDNISONE [Suspect]
     Active Substance: PREDNISONE
     Indication: Product used for unknown indication
     Dosage: DOSAGE UNKNOWN. 1 DROP IN EACH EYE 2 TIMES DAILY.
     Route: 047
  4. OXYBUTYNIN [Concomitant]
     Active Substance: OXYBUTYNIN
     Indication: Incontinence
     Route: 048
  5. TAMSULOSIN [Concomitant]
     Active Substance: TAMSULOSIN
     Indication: Incontinence
     Route: 048
  6. AMITIZA [Concomitant]
     Active Substance: LUBIPROSTONE
     Indication: Constipation
     Dosage: 24 MCG. 2 TABLETS TAKEN DAILY.
     Route: 048
  7. BACLOFEN [Concomitant]
     Active Substance: BACLOFEN
     Indication: Muscle spasms
     Route: 048
  8. GABAPENTIN [Concomitant]
     Active Substance: GABAPENTIN
     Route: 048
  9. DALFAMPRIDINE [Concomitant]
     Active Substance: DALFAMPRIDINE
     Route: 048
  10. ESTRACE [Concomitant]
     Active Substance: ESTRADIOL
     Indication: Vulvovaginal dryness
  11. TYLENOL [Concomitant]
     Active Substance: ACETAMINOPHEN
     Indication: Pyrexia
     Route: 048
  12. SENOKOT [Concomitant]
     Active Substance: SENNOSIDES
     Indication: Constipation
     Dosage: DOSAGE UNKNOWN. TWO TABLETS DAILY.
  13. NYSTATIN [Concomitant]
     Active Substance: NYSTATIN
     Indication: Dermatitis diaper
     Dosage: 15 GRAMS AS NEEDED
  14. ACETAMINOPHEN [Concomitant]
     Active Substance: ACETAMINOPHEN
     Dosage: 1 BEFORE BED, 1 BEFORE A NAP
     Route: 048
  15. CEPHALEXIN [Concomitant]
     Active Substance: CEPHALEXIN
     Dates: start: 2019
  16. DIPHENHYDRAMINE [Concomitant]
     Active Substance: DIPHENHYDRAMINE
     Dosage: 30 TO 60 MINUTES PRIOR TO INFUSION
     Dates: start: 201812
  17. RIFAMPIN [Concomitant]
     Active Substance: RIFAMPIN
     Dates: start: 201902
  18. ETHAMBUTOL [Concomitant]
     Active Substance: ETHAMBUTOL HYDROCHLORIDE
     Dates: start: 201902
  19. AZITHROMYCIN [Concomitant]
     Active Substance: AZITHROMYCIN
     Dates: start: 201902

REACTIONS (26)
  - Rib fracture [Not Recovered/Not Resolved]
  - Balance disorder [Not Recovered/Not Resolved]
  - Urinary tract infection [Recovered/Resolved]
  - Hyponatraemia [Recovered/Resolved]
  - Pulmonary mass [Not Recovered/Not Resolved]
  - Pneumonia fungal [Not Recovered/Not Resolved]
  - Blood sodium decreased [Recovered/Resolved]
  - Syncope [Not Recovered/Not Resolved]
  - Pneumonia [Unknown]
  - Hot flush [Recovered/Resolved]
  - Swelling [Recovered/Resolved]
  - Dyspnoea [Recovered/Resolved]
  - Pyrexia [Recovered/Resolved]
  - Sleep disorder [Recovered/Resolved]
  - Weight decreased [Not Recovered/Not Resolved]
  - Muscle atrophy [Recovered/Resolved]
  - Bone contusion [Recovering/Resolving]
  - Fatigue [Recovered/Resolved]
  - Fall [Unknown]
  - Joint hyperextension [Not Recovered/Not Resolved]
  - Ankle deformity [Not Recovered/Not Resolved]
  - Productive cough [Unknown]
  - Fungal infection [Not Recovered/Not Resolved]
  - Anal incontinence [Not Recovered/Not Resolved]
  - Diarrhoea [Unknown]
  - Asthenia [Not Recovered/Not Resolved]

NARRATIVE: CASE EVENT DATE: 20181101
